FAERS Safety Report 6894788-8 (Version None)
Quarter: 2010Q3

REPORT INFORMATION
  Report Type: 
  Country: None (occurrence: None)
  Receive Date: 20100730
  Receipt Date: 20100730
  Transmission Date: 20110219
  Serious: Yes (Other)
  Sender: FDA-Public Use
  Company Number: None

PATIENT
  Age: 73 Year
  Sex: Female
  Weight: 58.514 kg

DRUGS (1)
  1. TAMOXIFEN CITRATE [Suspect]
     Indication: BREAST CANCER STAGE IV
     Dosage: 20MG 1 X DAY
     Dates: start: 20100525, end: 20100628

REACTIONS (5)
  - BLISTER [None]
  - BREAST SWELLING [None]
  - ERYTHEMA [None]
  - PAIN [None]
  - SKIN DISCOLOURATION [None]
